FAERS Safety Report 18417274 (Version 5)
Quarter: 2021Q1

REPORT INFORMATION
  Report Type: Spontaneous
  Country: US (occurrence: US)
  Receive Date: 20201022
  Receipt Date: 20210330
  Transmission Date: 20210419
  Serious: Yes (Hospitalization)
  Sender: FDA-Public Use
  Company Number: 2020SGN02268

PATIENT
  Sex: Female

DRUGS (3)
  1. HERCEPTIN [Concomitant]
     Active Substance: TRASTUZUMAB
     Indication: BREAST CANCER FEMALE
  2. TUKYSA [Suspect]
     Active Substance: TUCATINIB
     Indication: BREAST CANCER FEMALE
     Dosage: UNK, BID
     Route: 048
  3. CAPECITABINE. [Concomitant]
     Active Substance: CAPECITABINE
     Indication: BREAST CANCER FEMALE
     Dosage: 3 DF, BID

REACTIONS (13)
  - Skin reaction [Unknown]
  - Flatulence [Unknown]
  - Eye disorder [Unknown]
  - Unevaluable event [Unknown]
  - Erythema [Unknown]
  - Product dose omission issue [Unknown]
  - Adverse drug reaction [Unknown]
  - Diarrhoea [Unknown]
  - Hospice care [Unknown]
  - Dizziness [Unknown]
  - Pain in extremity [Unknown]
  - Skin disorder [Unknown]
  - Dry skin [Unknown]
